FAERS Safety Report 9381480 (Version 3)
Quarter: 2013Q4

REPORT INFORMATION
  Report Type: Report from Study
  Country: US (occurrence: US)
  Receive Date: 20130703
  Receipt Date: 20131001
  Transmission Date: 20140711
  Serious: Yes (Hospitalization, Other)
  Sender: FDA-Public Use
  Company Number: PHEH2013US014144

PATIENT
  Age: 32 Year
  Sex: Female

DRUGS (9)
  1. TASIGNA [Suspect]
     Indication: CHRONIC MYELOID LEUKAEMIA
     Dosage: 400 MG, BID
     Route: 048
     Dates: start: 20130528
  2. TASIGNA [Suspect]
     Dosage: 200 MG, BID
     Route: 048
     Dates: start: 20130916
  3. WARFARIN SODIUM [Concomitant]
     Dosage: UNK UKN, UNK
  4. LORAZEPAM [Concomitant]
     Dosage: UNK UKN, UNK
  5. PROCHLORPERAZINE [Concomitant]
     Dosage: UNK UKN, UNK
  6. MULTIVITAMIN//VITAMINS NOS [Concomitant]
     Dosage: UNK UKN, UNK
  7. NUVARING [Concomitant]
     Dosage: UNK UKN, UNK
     Route: 067
  8. ZOFRAN [Concomitant]
  9. CYMBALTA [Concomitant]

REACTIONS (6)
  - Thrombosis [Unknown]
  - Haemoglobin decreased [Unknown]
  - Platelet count decreased [Unknown]
  - Rash [Recovering/Resolving]
  - Chronic myeloid leukaemia [Unknown]
  - Malignant neoplasm progression [Unknown]
